FAERS Safety Report 8809690 (Version 2)
Quarter: 2012Q4

REPORT INFORMATION
  Report Type: 
  Country: US (occurrence: US)
  Receive Date: 20120926
  Receipt Date: 20121129
  Transmission Date: 20130627
  Serious: No
  Sender: FDA-Public Use
  Company Number: US-ASTRAZENECA-2012SE70878

PATIENT
  Age: 53 Year
  Sex: Male

DRUGS (3)
  1. NEXIUM [Suspect]
     Route: 048
  2. GENERIC MAXIDE [Concomitant]
  3. PRILOSEC [Concomitant]

REACTIONS (7)
  - Abdominal distension [Recovered/Resolved]
  - Hypoaesthesia [Unknown]
  - Pain [Unknown]
  - Feeling abnormal [Unknown]
  - Eructation [Recovered/Resolved]
  - Abdominal pain [Unknown]
  - Headache [Unknown]
